FAERS Safety Report 18050028 (Version 1)
Quarter: 2020Q3

REPORT INFORMATION
  Report Type: Spontaneous
  Country: US (occurrence: US)
  Receive Date: 20200721
  Receipt Date: 20200721
  Transmission Date: 20201103
  Serious: No
  Sender: FDA-Public Use
  Company Number: US-JNJFOC-20200723796

PATIENT
  Age: 65 Year
  Sex: Male
  Weight: 104.42 kg

DRUGS (1)
  1. STELARA [Suspect]
     Active Substance: USTEKINUMAB
     Indication: PSORIASIS
     Dosage: STARTED 13 YEARS AGO
     Route: 058

REACTIONS (4)
  - Inappropriate schedule of product administration [Unknown]
  - Off label use [Unknown]
  - Skin hyperpigmentation [Not Recovered/Not Resolved]
  - Acrochordon [Not Recovered/Not Resolved]
